FAERS Safety Report 9325899 (Version 2)
Quarter: 2013Q3

REPORT INFORMATION
  Report Type: Spontaneous
  Country: JP (occurrence: JP)
  Receive Date: 20130604
  Receipt Date: 20130702
  Transmission Date: 20140515
  Serious: Yes (Hospitalization)
  Sender: FDA-Public Use
  Company Number: JP-ELI_LILLY_AND_COMPANY-JP201305007854

PATIENT
  Age: 44 Year
  Sex: Male
  Weight: 90 kg

DRUGS (9)
  1. STRATTERA [Suspect]
     Indication: ATTENTION DEFICIT/HYPERACTIVITY DISORDER
     Dosage: 40 MG, QD
     Route: 048
     Dates: start: 20120925
  2. STRATTERA [Suspect]
     Dosage: 80 MG, QD
     Route: 048
  3. STRATTERA [Suspect]
     Dosage: 120 MG, QD
     Route: 048
     Dates: start: 20130425, end: 20130519
  4. STRATTERA [Suspect]
     Dosage: 80 MG, QD
  5. STRATTERA [Suspect]
     Dosage: 120 MG, QD
     Route: 048
  6. CYMBALTA [Suspect]
     Indication: ATTENTION DEFICIT/HYPERACTIVITY DISORDER
     Dosage: 20 MG, QD
     Dates: start: 20120925, end: 20120925
  7. LUVOX [Concomitant]
     Indication: ATTENTION DEFICIT/HYPERACTIVITY DISORDER
     Dosage: 50 MG, TID
     Dates: start: 201104, end: 20130424
  8. REFLEX [Concomitant]
     Indication: ATTENTION DEFICIT/HYPERACTIVITY DISORDER
     Dosage: 15 MG, QD
     Dates: start: 20120925
  9. LANDSEN [Concomitant]
     Indication: ATTENTION DEFICIT/HYPERACTIVITY DISORDER
     Dosage: 0.5 MG, QD

REACTIONS (3)
  - Hypokalaemia [Recovered/Resolved]
  - Monoplegia [Unknown]
  - Off label use [Unknown]
